FAERS Safety Report 25245014 (Version 1)
Quarter: 2025Q2

REPORT INFORMATION
  Report Type: Spontaneous
  Country: CN (occurrence: CN)
  Receive Date: 20250428
  Receipt Date: 20250428
  Transmission Date: 20250716
  Serious: Yes (Hospitalization)
  Sender: BEIGENE
  Company Number: CN-BEIGENE-BGN-2025-006500

PATIENT
  Age: 77 Year
  Weight: 75 kg

DRUGS (10)
  1. TISLELIZUMAB [Suspect]
     Active Substance: TISLELIZUMAB
     Indication: Lung neoplasm malignant
     Dosage: 200 MILLIGRAM, D1, Q3WK
  2. TISLELIZUMAB [Suspect]
     Active Substance: TISLELIZUMAB
     Dosage: 200 MILLIGRAM, D1, Q3WK
     Route: 041
  3. TISLELIZUMAB [Suspect]
     Active Substance: TISLELIZUMAB
     Dosage: 200 MILLIGRAM, D1, Q3WK
     Route: 041
  4. TISLELIZUMAB [Suspect]
     Active Substance: TISLELIZUMAB
     Dosage: 200 MILLIGRAM, D1, Q3WK
  5. GEMCITABINE HYDROCHLORIDE [Suspect]
     Active Substance: GEMCITABINE HYDROCHLORIDE
     Indication: Lung neoplasm malignant
     Dosage: 1.2 GRAM, D1, Q3WK
     Route: 041
  6. GEMCITABINE HYDROCHLORIDE [Suspect]
     Active Substance: GEMCITABINE HYDROCHLORIDE
     Dosage: 1.2 GRAM, D1, Q3WK
  7. CISPLATIN [Suspect]
     Active Substance: CISPLATIN
     Indication: Lung neoplasm malignant
     Dosage: 40 MILLIGRAM, D1-3, Q3WK
     Route: 041
  8. CISPLATIN [Suspect]
     Active Substance: CISPLATIN
     Dosage: 40 MILLIGRAM, D1-3, Q3WK
  9. SODIUM CHLORIDE [Concomitant]
     Active Substance: SODIUM CHLORIDE
     Indication: Vehicle solution use
     Dosage: 100 MILLILITER, QD
     Route: 041
  10. SODIUM CHLORIDE [Concomitant]
     Active Substance: SODIUM CHLORIDE
     Dosage: 100 MILLILITER, QD

REACTIONS (1)
  - Myelosuppression [Recovering/Resolving]
